FAERS Safety Report 21560187 (Version 2)
Quarter: 2022Q4

REPORT INFORMATION
  Report Type: Spontaneous
  Country: JP (occurrence: JP)
  Receive Date: 20221107
  Receipt Date: 20221128
  Transmission Date: 20230113
  Serious: Yes (Hospitalization)
  Sender: FDA-Public Use
  Company Number: JP-MYLANLABS-2022M1118263

PATIENT
  Age: 79 Year
  Sex: Male
  Weight: 61 kg

DRUGS (3)
  1. CELECOXIB [Suspect]
     Active Substance: CELECOXIB
     Indication: Neck pain
     Dosage: 100 MILLIGRAM, BID
     Route: 048
     Dates: start: 20220825, end: 20220915
  2. MIROGABALIN BESYLATE [Suspect]
     Active Substance: MIROGABALIN BESYLATE
     Indication: Neck pain
     Dosage: 5 MILLIGRAM, BID
     Route: 048
     Dates: start: 20220908, end: 20220915
  3. REBAMIPIDE [Concomitant]
     Active Substance: REBAMIPIDE
     Indication: Gastritis
     Dosage: 100 MILLIGRAM, BID
     Route: 065
     Dates: start: 20220825, end: 20220915

REACTIONS (1)
  - Interstitial lung disease [Recovering/Resolving]

NARRATIVE: CASE EVENT DATE: 20220901
